FAERS Safety Report 24384638 (Version 1)
Quarter: 2024Q4

REPORT INFORMATION
  Report Type: Spontaneous
  Country: US (occurrence: US)
  Receive Date: 20241001
  Receipt Date: 20241001
  Transmission Date: 20250115
  Serious: Yes (Other)
  Sender: UCB
  Company Number: US-UCBSA-2024048955

PATIENT
  Sex: Male
  Weight: 98.594 kg

DRUGS (3)
  1. CIMZIA [Suspect]
     Active Substance: CERTOLIZUMAB PEGOL
     Indication: Psoriatic arthropathy
     Dosage: 400 MILLIGRAM, EV 4 WEEKS (STARTED 2 YEARS AGO)
     Route: 058
  2. RITALIN [Concomitant]
     Active Substance: METHYLPHENIDATE HYDROCHLORIDE
     Indication: Product used for unknown indication
     Dosage: UNK
  3. NOVOLOG [Concomitant]
     Active Substance: INSULIN ASPART
     Dosage: UNK (100/ML VIAL)

REACTIONS (4)
  - Psoriatic arthropathy [Unknown]
  - Alopecia [Unknown]
  - Therapy interrupted [Unknown]
  - Pregnancy of partner [Unknown]

NARRATIVE: CASE EVENT DATE: 20240101
